FAERS Safety Report 8912845 (Version 6)
Quarter: 2013Q2

REPORT INFORMATION
  Report Type: Report from Study
  Country: JP (occurrence: JP)
  Receive Date: 20121116
  Receipt Date: 20130506
  Transmission Date: 20140414
  Serious: Yes (Death, Other)
  Sender: FDA-Public Use
  Company Number: JP-JNJFOC-20121105349

PATIENT
  Age: 62 Year
  Sex: Female
  Weight: 61 kg

DRUGS (8)
  1. SIMPONI [Suspect]
     Indication: RHEUMATOID ARTHRITIS
     Route: 058
     Dates: start: 20121025, end: 20121025
  2. PREDNISOLONE [Concomitant]
     Indication: RHEUMATOID ARTHRITIS
     Route: 048
  3. LOXONIN [Concomitant]
     Indication: RHEUMATOID ARTHRITIS
  4. ALFAROL [Concomitant]
     Indication: PROPHYLAXIS
     Route: 048
  5. BENET [Concomitant]
     Indication: PROPHYLAXIS
     Route: 048
  6. JUVELA N [Concomitant]
     Indication: HYPERTENSION
     Route: 048
  7. OLMETEC [Concomitant]
     Indication: HYPERTENSION
     Route: 048
  8. ANPLAG [Concomitant]
     Indication: PROPHYLAXIS
     Route: 048

REACTIONS (4)
  - Shock [Unknown]
  - Death [Fatal]
  - Dyspnoea [Not Recovered/Not Resolved]
  - Extradural abscess [Recovered/Resolved]
